FAERS Safety Report 25865234 (Version 1)
Quarter: 2025Q3

REPORT INFORMATION
  Report Type: Spontaneous
  Country: EU (occurrence: EU)
  Receive Date: 20250930
  Receipt Date: 20250930
  Transmission Date: 20251021
  Serious: Yes (Other)
  Sender: TAKEDA
  Company Number: None

PATIENT
  Age: 24 Year
  Sex: Male

DRUGS (3)
  1. ENTYVIO [Suspect]
     Active Substance: VEDOLIZUMAB
     Indication: Product used for unknown indication
     Dosage: UNK UNK, Q4WEEKS
     Dates: start: 2024
  2. HUMIRA [Suspect]
     Active Substance: ADALIMUMAB
     Indication: Crohn^s disease
  3. AZATHIOPRINE [Concomitant]
     Active Substance: AZATHIOPRINE
     Indication: Product used for unknown indication

REACTIONS (12)
  - Gastrointestinal neoplasm [Unknown]
  - Small intestinal anastomosis [Unknown]
  - Large intestinal stenosis [Unknown]
  - Abdominal wall haemorrhage [Unknown]
  - Enterocutaneous fistula [Unknown]
  - Underweight [Unknown]
  - Abdominal adhesions [Unknown]
  - Fistula discharge [Unknown]
  - Bladder disorder [Unknown]
  - Enteritis [Unknown]
  - Weight decreased [Unknown]
  - Diarrhoea [Unknown]

NARRATIVE: CASE EVENT DATE: 20240701
